FAERS Safety Report 6871719-8 (Version None)
Quarter: 2010Q3

REPORT INFORMATION
  Report Type: 
  Country: None (occurrence: None)
  Receive Date: 20100723
  Receipt Date: 20100706
  Transmission Date: 20110219
  Serious: Yes (Death, Hospitalization)
  Sender: FDA-Public Use
  Company Number: A0835526A

PATIENT
  Age: 64 Year
  Sex: Male
  Weight: 94.5 kg

DRUGS (1)
  1. AVANDIA [Suspect]
     Route: 048

REACTIONS (4)
  - CARDIAC ARREST [None]
  - CARDIO-RESPIRATORY ARREST [None]
  - DIABETES MELLITUS [None]
  - SUDDEN CARDIAC DEATH [None]
